FAERS Safety Report 19097377 (Version 2)
Quarter: 2021Q2

REPORT INFORMATION
  Report Type: Spontaneous
  Country: GB (occurrence: GB)
  Receive Date: 20210406
  Receipt Date: 20210423
  Transmission Date: 20210717
  Serious: Yes (Other)
  Sender: FDA-Public Use
  Company Number: GB-PFIZER INC-2021349250

PATIENT
  Age: 65 Year
  Sex: Male

DRUGS (5)
  1. VINBLASTINE [Suspect]
     Active Substance: VINBLASTINE
     Indication: NON-HODGKIN^S LYMPHOMA
     Dosage: 10 MG, CYCLIC EVERY FOURTH WEEK
     Route: 042
     Dates: start: 197601
  2. CHLORAMBUCIL [Concomitant]
     Active Substance: CHLORAMBUCIL
     Indication: NON-HODGKIN^S LYMPHOMA
     Dosage: 2 MG PER DAY EVERY FOURTH WEEK
     Route: 042
     Dates: start: 197601
  3. VINCRISTINE [Concomitant]
     Active Substance: VINCRISTINE
     Indication: NON-HODGKIN^S LYMPHOMA
     Dosage: 2 MG
     Route: 042
     Dates: start: 1975
  4. CYCLOPHOSPHAMIDE. [Concomitant]
     Active Substance: CYCLOPHOSPHAMIDE
     Indication: NON-HODGKIN^S LYMPHOMA
     Dosage: 400 MG, DAILY
     Dates: start: 1975
  5. PREDNISONE. [Concomitant]
     Active Substance: PREDNISONE
     Indication: NON-HODGKIN^S LYMPHOMA
     Dosage: 30 MG, DAILY
     Dates: start: 1975

REACTIONS (1)
  - Vagus nerve paralysis [Recovered/Resolved]

NARRATIVE: CASE EVENT DATE: 197602
